FAERS Safety Report 20009326 (Version 4)
Quarter: 2021Q4

REPORT INFORMATION
  Report Type: Spontaneous
  Country: BR (occurrence: BR)
  Receive Date: 20211028
  Receipt Date: 20211117
  Transmission Date: 20220303
  Serious: Yes (Death)
  Sender: FDA-Public Use
  Company Number: BR-CELGENE-BRA-20211007438

PATIENT
  Sex: Female
  Weight: 104 kg

DRUGS (2)
  1. AZACITIDINE [Suspect]
     Active Substance: AZACITIDINE
     Indication: Myelodysplastic syndrome
     Dosage: 100 MILLIGRAM
     Route: 041
     Dates: start: 20141010
  2. AZACITIDINE [Suspect]
     Active Substance: AZACITIDINE
     Dosage: 150 MILLIGRAM
     Route: 041
     Dates: end: 20200228

REACTIONS (4)
  - Diabetes mellitus [Fatal]
  - Arrhythmia [Fatal]
  - Lung disorder [Fatal]
  - Myelodysplastic syndrome [Fatal]
